FAERS Safety Report 10365185 (Version 1)
Quarter: 2014Q3

REPORT INFORMATION
  Report Type: Spontaneous
  Country: US (occurrence: None)
  Receive Date: 20140805
  Receipt Date: 20140805
  Transmission Date: 20150326
  Serious: Yes (Other)
  Sender: FDA-Public Use
  Company Number: None

PATIENT
  Age: 62 Year
  Sex: Female

DRUGS (1)
  1. FUROSEMIDE. [Suspect]
     Active Substance: FUROSEMIDE
     Indication: POLYURIA
     Dosage: 20MG QD ORAL?OVER A YEAR
     Route: 048

REACTIONS (3)
  - Drug ineffective [None]
  - Product quality issue [None]
  - Product substitution issue [None]

NARRATIVE: CASE EVENT DATE: 20140715
